FAERS Safety Report 4492211-4 (Version None)
Quarter: 2004Q4

REPORT INFORMATION
  Report Type: 
  Country: None (occurrence: None)
  Receive Date: 20041103
  Receipt Date: 20041020
  Transmission Date: 20050328
  Serious: Yes (Hospitalization)
  Sender: FDA-Public Use
  Company Number: CL-MERCK-0410CHL00036

PATIENT
  Age: 67 Year
  Sex: Female

DRUGS (2)
  1. VIOXX [Suspect]
     Indication: SURGERY
     Route: 048
     Dates: start: 20040813, end: 20040902
  2. VIOXX [Suspect]
     Route: 048
     Dates: start: 20040903, end: 20040909

REACTIONS (3)
  - CARDIAC FAILURE CONGESTIVE [None]
  - PERICARDIAL EFFUSION [None]
  - PLEURAL EFFUSION [None]
